FAERS Safety Report 6280454-9 (Version None)
Quarter: 2009Q3

REPORT INFORMATION
  Report Type: 
  Country: None (occurrence: None)
  Receive Date: 20090724
  Receipt Date: 20080609
  Transmission Date: 20100115
  Serious: No
  Sender: FDA-Public Use
  Company Number: A0732245A

PATIENT
  Age: 80 Year
  Sex: Female

DRUGS (4)
  1. AVANDIA [Suspect]
     Dosage: 4MG TWICE PER DAY
     Route: 048
     Dates: start: 19980101
  2. LIPITOR [Concomitant]
  3. PREVACID [Concomitant]
  4. LISINOPRIL [Concomitant]

REACTIONS (4)
  - CHEST PAIN [None]
  - DIZZINESS [None]
  - PALPITATIONS [None]
  - PHOTOPSIA [None]
